FAERS Safety Report 10247601 (Version 2)
Quarter: 2014Q2

REPORT INFORMATION
  Report Type: Report from Study
  Country: FR (occurrence: FR)
  Receive Date: 20140619
  Receipt Date: 20140623
  Transmission Date: 20141212
  Serious: Yes (Hospitalization, Other)
  Sender: FDA-Public Use
  Company Number: PHHY2014FR075024

PATIENT
  Age: 48 Year
  Sex: Female

DRUGS (21)
  1. NEORAL [Suspect]
     Indication: IMMUNOSUPPRESSION
     Dosage: 100 MG, BID
     Route: 048
  2. CORTANCYL [Suspect]
     Indication: IMMUNOSUPPRESSION
     Dosage: 20 MG, QD
  3. CORTANCYL [Suspect]
     Dosage: 5 MG, QD
  4. ANTITHYMOCYTE IMMUNOGLOBULIN [Suspect]
     Indication: ACUTE GRAFT VERSUS HOST DISEASE
     Dosage: 160 MG, QD
     Route: 042
     Dates: start: 20131205, end: 20131208
  5. ROVALCYTE [Concomitant]
     Dosage: 450 MG, UNK
  6. WELLVONE [Concomitant]
     Dosage: UNK UKN, UNK
  7. NOXAFIL [Concomitant]
     Dosage: 200 MG, UNK
  8. ORACILLINE [Concomitant]
     Dosage: UNK UKN, UNK
  9. XANAX [Concomitant]
     Dosage: UNK UKN, UNK
  10. INEXIUM//ESOMEPRAZOLE MAGNESIUM [Concomitant]
     Dosage: UNK UKN, UNK
  11. DEBRIDAT//TRIMEBUTINE [Concomitant]
     Dosage: UNK UKN, UNK
  12. PARACETAMOL [Concomitant]
     Dosage: UNK UKN, UNK
  13. OXYNORMORO [Concomitant]
     Dosage: UNK UKN, UNK
  14. NERISONE [Concomitant]
     Dosage: UNK UKN, UNK
  15. DEXERYL /FRA/ [Concomitant]
     Dosage: UNK UKN, UNK
  16. CALCIDOSE [Concomitant]
     Dosage: UNK UKN, UNK
  17. TIORFAN [Concomitant]
     Dosage: UNK UKN, UNK
  18. NACL [Concomitant]
     Dosage: UNK UKN, UNK
     Route: 042
  19. SPASFON [Concomitant]
     Dosage: UNK UKN, UNK
  20. MAGNESIUM SULPHATE                 /01097001/ [Concomitant]
     Dosage: UNK UKN, UNK
  21. PERFALGAN [Concomitant]
     Dosage: UNK UKN, UNK
     Route: 042

REACTIONS (15)
  - Bone marrow failure [Unknown]
  - Purpura [Unknown]
  - Klebsiella sepsis [Unknown]
  - Cytomegalovirus infection [Unknown]
  - Body temperature increased [Unknown]
  - Chills [Unknown]
  - Epstein-Barr virus infection [Unknown]
  - Graft versus host disease in skin [Unknown]
  - Meningitis aseptic [Unknown]
  - Headache [Unknown]
  - Oropharyngeal candidiasis [Unknown]
  - Back pain [Unknown]
  - Abdominal pain [Unknown]
  - Rales [Unknown]
  - Oedema peripheral [Unknown]
